FAERS Safety Report 9335122 (Version 3)
Quarter: 2013Q3

REPORT INFORMATION
  Report Type: Spontaneous
  Country: US (occurrence: US)
  Receive Date: 20130606
  Receipt Date: 20130709
  Transmission Date: 20140515
  Serious: Yes (Hospitalization)
  Sender: FDA-Public Use
  Company Number: US-GILEAD-2013-0076612

PATIENT
  Sex: Male

DRUGS (5)
  1. LETAIRIS [Suspect]
     Indication: PULMONARY HYPERTENSION
     Dosage: 5 MG, QD
     Route: 048
     Dates: start: 20110420
  2. LETAIRIS [Suspect]
     Indication: TOXICITY TO VARIOUS AGENTS
  3. COUMADIN                           /00014802/ [Concomitant]
  4. ADCIRCA [Concomitant]
  5. REMODULIN [Concomitant]

REACTIONS (2)
  - Tachycardia [Unknown]
  - Dyspnoea [Unknown]
